FAERS Safety Report 9586652 (Version 1)
Quarter: 2013Q4

REPORT INFORMATION
  Report Type: Spontaneous
  Country: ES (occurrence: ES)
  Receive Date: 20131003
  Receipt Date: 20131003
  Transmission Date: 20140711
  Serious: Yes (Hospitalization, Other)
  Sender: FDA-Public Use
  Company Number: ES-BAYER-2013-117064

PATIENT
  Age: 36 Year
  Sex: Female

DRUGS (1)
  1. ACETYLSALICYLIC ACID({=100 MG) [Suspect]
     Dosage: DAILY DOSE 100 MG

REACTIONS (4)
  - Gestational hypertension [Recovered/Resolved]
  - Pre-eclampsia [Recovered/Resolved]
  - VIth nerve paralysis [Recovered/Resolved]
  - Exposure during pregnancy [None]
